FAERS Safety Report 4536507-6 (Version None)
Quarter: 2004Q4

REPORT INFORMATION
  Report Type: 
  Country: None (occurrence: None)
  Receive Date: 20041223
  Receipt Date: 20041213
  Transmission Date: 20050328
  Serious: Yes (Hospitalization)
  Sender: FDA-Public Use
  Company Number: NO-JNJFOC-20041203691

PATIENT
  Age: 59 Year
  Sex: Female

DRUGS (17)
  1. INFLIXIMAB [Suspect]
     Dosage: TOTAL INFUSIONS:- 23
     Route: 042
  2. INFLIXIMAB [Suspect]
     Route: 042
  3. INFLIXIMAB [Suspect]
     Route: 042
  4. INFLIXIMAB [Suspect]
     Route: 042
  5. INFLIXIMAB [Suspect]
     Indication: RHEUMATOID ARTHRITIS
     Dosage: FIRST INFUSION.
     Route: 042
  6. METHOTREXATE [Concomitant]
     Indication: RHEUMATOID ARTHRITIS
     Route: 065
  7. PREDNISOLONE [Concomitant]
     Indication: RHEUMATOID ARTHRITIS
     Route: 065
  8. IBUX [Concomitant]
     Route: 065
  9. VIOXX [Concomitant]
     Dosage: 1-2 DOSES TAKEN DAILY
     Route: 065
  10. FOLIC ACID [Concomitant]
     Dosage: 6-7 DOSES TAKEN DAILY
     Route: 065
  11. CALCIGRAN [Concomitant]
     Route: 065
  12. CALCIGRAN [Concomitant]
     Route: 065
  13. CALCIGRAN [Concomitant]
     Route: 065
  14. CALCIGRAN [Concomitant]
     Route: 065
  15. FOSAMAX [Concomitant]
     Dosage: USED FOR MANY YEARS.
     Route: 065
  16. LIPITOR [Concomitant]
     Dosage: USED FOR MANY YEARS
     Route: 065
  17. THYROXINE [Concomitant]
     Dosage: USED FOR MANY YEARS.
     Route: 065

REACTIONS (3)
  - FATIGUE [None]
  - HAEMATOMA [None]
  - RIB FRACTURE [None]
